FAERS Safety Report 4494503-1 (Version None)
Quarter: 2004Q4

REPORT INFORMATION
  Report Type: 
  Country: None (occurrence: None)
  Receive Date: 20041102
  Receipt Date: 20041025
  Transmission Date: 20050328
  Serious: Yes (Life-Threatening, Other)
  Sender: FDA-Public Use
  Company Number: 2004238949DE

PATIENT
  Age: 60 Year
  Sex: Male
  Weight: 90 kg

DRUGS (1)
  1. FRAGMIN [Suspect]
     Indication: FRACTURE
     Dosage: 0.5 ML, DAILY, SUBCUTANEOUS
     Route: 058
     Dates: start: 20041002

REACTIONS (2)
  - HAEMORRHAGE [None]
  - PULMONARY EMBOLISM [None]
